FAERS Safety Report 4887010-5 (Version None)
Quarter: 2006Q1

REPORT INFORMATION
  Report Type: 
  Country: None (occurrence: None)
  Receive Date: 20060120
  Receipt Date: 20050317
  Transmission Date: 20060701
  Serious: Yes (Hospitalization)
  Sender: FDA-Public Use
  Company Number: US-MERCK-0503USA03407

PATIENT
  Age: 51 Year
  Sex: Female
  Weight: 112 kg

DRUGS (1)
  1. VIOXX [Suspect]
     Route: 048
     Dates: end: 20040324

REACTIONS (21)
  - ACCELERATED HYPERTENSION [None]
  - ANGINA UNSTABLE [None]
  - ASTHENIA [None]
  - BACK PAIN [None]
  - CEREBROVASCULAR ACCIDENT [None]
  - CHEST DISCOMFORT [None]
  - CHEST PAIN [None]
  - DEPRESSED LEVEL OF CONSCIOUSNESS [None]
  - DEPRESSION [None]
  - DIABETES MELLITUS [None]
  - DIZZINESS [None]
  - DYSPNOEA [None]
  - ENCEPHALOPATHY [None]
  - HYPERTENSION [None]
  - HYPERTENSIVE HEART DISEASE [None]
  - HYPERVENTILATION [None]
  - IIIRD NERVE PARESIS [None]
  - IODINE ALLERGY [None]
  - NECK PAIN [None]
  - STRESS [None]
  - VOMITING [None]
